FAERS Safety Report 11089681 (Version 1)
Quarter: 2015Q2

REPORT INFORMATION
  Report Type: Spontaneous
  Country: US (occurrence: US)
  Receive Date: 20150505
  Receipt Date: 20150505
  Transmission Date: 20150821
  Serious: Yes (Hospitalization)
  Sender: FDA-Public Use
  Company Number: US-SUN PHARMACEUTICAL INDUSTRIES LTD-2015US-96325

PATIENT
  Sex: Female

DRUGS (2)
  1. ABSORICA [Suspect]
     Active Substance: ISOTRETINOIN
     Indication: ACNE
     Dosage: 30 MG, BID
     Route: 065
     Dates: start: 20141001, end: 20150401
  2. ADVIL [Concomitant]
     Active Substance: IBUPROFEN
     Indication: HEADACHE
     Route: 065

REACTIONS (5)
  - Headache [Recovered/Resolved]
  - Vision blurred [Unknown]
  - Nausea [Unknown]
  - Meningitis chemical [Unknown]
  - Confusional state [Unknown]

NARRATIVE: CASE EVENT DATE: 20150325
